FAERS Safety Report 9008902 (Version 1)
Quarter: 2013Q1

REPORT INFORMATION
  Report Type: Spontaneous
  Country: DE (occurrence: DE)
  Receive Date: 20130111
  Receipt Date: 20130111
  Transmission Date: 20140127
  Serious: Yes (Hospitalization)
  Sender: FDA-Public Use
  Company Number: DE-009507513-2012SP029476

PATIENT
  Age: 9 Year
  Sex: Female
  Weight: 35.5 kg

DRUGS (3)
  1. PEGINTRON [Suspect]
     Indication: HEPATITIS C
     Dosage: 80 UNK, UNK
     Route: 058
     Dates: start: 20120323
  2. REBETOL [Suspect]
     Indication: HEPATITIS C
     Dosage: 15 MG/KG, UNK
     Route: 048
  3. REBETOL [Suspect]
     Dosage: 11 MG/KG, UNK
     Route: 048
     Dates: start: 20120606, end: 20120831

REACTIONS (1)
  - Weight decreased [Recovered/Resolved]
